FAERS Safety Report 13516390 (Version 1)
Quarter: 2017Q2

REPORT INFORMATION
  Report Type: Spontaneous
  Country: KW (occurrence: KW)
  Receive Date: 20170501
  Receipt Date: 20170501
  Transmission Date: 20170830
  Serious: Yes (Other)
  Sender: FDA-Public Use
  Company Number: KW-RARE DISEASE THERPAUTICS, INC.-1063742

PATIENT
  Age: 15 Year
  Sex: Male
  Weight: 56 kg

DRUGS (7)
  1. CYSTADANE [Suspect]
     Active Substance: BETAINE
     Dates: start: 201701
  2. FOLINIC ACID [Concomitant]
     Active Substance: LEUCOVORIN
  3. CYSTADANE [Suspect]
     Active Substance: BETAINE
     Dates: start: 20161118
  4. CYSTADANE [Suspect]
     Active Substance: BETAINE
     Indication: CYSTATHIONINE BETA-SYNTHASE DEFICIENCY
     Route: 048
     Dates: start: 201510
  5. VITAMIN B6 [Concomitant]
     Active Substance: PYRIDOXINE HYDROCHLORIDE
  6. VITAMIN B12 [Concomitant]
     Active Substance: CYANOCOBALAMIN
  7. OMEGA 3 (FISH OIL) [Concomitant]
     Active Substance: OMEGA-3 FATTY ACIDS

REACTIONS (1)
  - Neutropenia [Not Recovered/Not Resolved]

NARRATIVE: CASE EVENT DATE: 201612
